FAERS Safety Report 6062472-9 (Version None)
Quarter: 2009Q1

REPORT INFORMATION
  Report Type: 
  Country: None (occurrence: None)
  Receive Date: 20090202
  Receipt Date: 20090202
  Transmission Date: 20090719
  Serious: No
  Sender: FDA-Public Use
  Company Number: None

PATIENT
  Sex: Female
  Weight: 117.27 kg

DRUGS (11)
  1. VENLAFAXINE HCL [Suspect]
     Dosage: 50MG TABLET 50 MG QD ORAL
     Route: 048
     Dates: start: 20090129, end: 20090202
  2. BENZOYL PEROXIDE WASH [Concomitant]
  3. CALCIUM WITH VITAMIN D [Concomitant]
  4. CLEOCIN T [Concomitant]
  5. CLONAZEPAM [Concomitant]
  6. ESTRADIOL VAGINAL [Concomitant]
  7. FLUNISOLIDE NASAL [Concomitant]
  8. MVI (MULTIVITAMINS) [Concomitant]
  9. PAXIL [Concomitant]
  10. TRETINOIN [Concomitant]
  11. ASCORBIC ACID [Concomitant]

REACTIONS (1)
  - GASTROINTESTINAL DISORDER [None]
